FAERS Safety Report 23522009 (Version 1)
Quarter: 2024Q1

REPORT INFORMATION
  Report Type: Spontaneous
  Country: US (occurrence: US)
  Receive Date: 20240214
  Receipt Date: 20240214
  Transmission Date: 20240410
  Serious: Yes (Other)
  Sender: FDA-Public Use
  Company Number: None

PATIENT
  Age: 9 Year
  Sex: Female

DRUGS (3)
  1. NECON [Suspect]
     Active Substance: ETHINYL ESTRADIOL\NORETHINDRONE
     Indication: Oral contraception
     Dosage: 10 MICROGRAM
     Route: 048
  2. ETHINYL ESTRADIOL [Suspect]
     Active Substance: ETHINYL ESTRADIOL
     Indication: Oral contraception
     Route: 048
  3. FERROUS FUMARATE [Concomitant]
     Active Substance: FERROUS FUMARATE
     Route: 048

REACTIONS (1)
  - Fibroadenoma of breast [Recovering/Resolving]
